FAERS Safety Report 5206259-5 (Version None)
Quarter: 2006Q4

REPORT INFORMATION
  Report Type: 
  Country: None (occurrence: None)
  Receive Date: 20061026
  Receipt Date: 20060314
  Transmission Date: 20070319
  Serious: Yes (Death)
  Sender: FDA-Public Use
  Company Number: MSER20060007

PATIENT
  Age: 17 Year
  Sex: Male

DRUGS (5)
  1. MORPHINE [Suspect]
     Dates: start: 20060201, end: 20060201
  2. DIAZEPAM [Suspect]
     Dosage: UNK
  3. DIPHENHYDRAMINE HCL [Suspect]
  4. ACETAMINOPHEN [Suspect]
  5. IBUPROFEN [Concomitant]

REACTIONS (5)
  - ACCIDENTAL OVERDOSE [None]
  - BRAIN OEDEMA [None]
  - DRUG ABUSER [None]
  - DRUG TOXICITY [None]
  - PULMONARY OEDEMA [None]
